FAERS Safety Report 6195924-1 (Version None)
Quarter: 2009Q2

REPORT INFORMATION
  Report Type: 
  Country: None (occurrence: None)
  Receive Date: 20090520
  Receipt Date: 20090515
  Transmission Date: 20091009
  Serious: Yes (Other)
  Sender: FDA-Public Use
  Company Number: AU-AVENTIS-200912633EU

PATIENT
  Age: 80 Year
  Sex: Female

DRUGS (9)
  1. LASIX [Suspect]
     Dosage: DOSE: UNK
  2. PLAVIX [Suspect]
     Dosage: DOSE: UNK
  3. ACTONEL WITH CALCIUM (COPACKAGED) [Suspect]
     Dosage: DOSE: UNK
     Route: 048
     Dates: start: 20040206, end: 20090316
  4. DILATREND [Concomitant]
  5. CAPTOPRIL [Concomitant]
  6. NEXIUM [Concomitant]
  7. ASPIRIN [Concomitant]
  8. LIPEX                              /00848101/ [Concomitant]
  9. VIT D [Concomitant]

REACTIONS (1)
  - MYOCARDIAL INFARCTION [None]
